FAERS Safety Report 22057843 (Version 1)
Quarter: 2023Q1

REPORT INFORMATION
  Report Type: Report from Study
  Country: US (occurrence: US)
  Receive Date: 20230303
  Receipt Date: 20230303
  Transmission Date: 20230418
  Serious: No
  Sender: FDA-Public Use
  Company Number: US-ORG100014127-2022001315

PATIENT
  Age: 75 Year
  Sex: Female

DRUGS (9)
  1. METOPIRONE [Suspect]
     Active Substance: METYRAPONE
     Indication: Pituitary-dependent Cushing^s syndrome
     Dosage: 02 CAPSULES TWICE DAILY
     Route: 048
     Dates: start: 20201016
  2. ALLEGRA ALRG TAB 60MG [Concomitant]
     Indication: Product used for unknown indication
  3. CITALOPRAM TAB 10MG [Concomitant]
     Indication: Product used for unknown indication
  4. FORTEO INJ 600/2.4 [Concomitant]
     Indication: Product used for unknown indication
  5. FOSAMAX [Concomitant]
     Active Substance: ALENDRONATE SODIUM
     Indication: Product used for unknown indication
  6. LEVOTHYROXINTAB 125MCG [Concomitant]
     Indication: Product used for unknown indication
  7. OMEGA-3 CAP 1200MG [Concomitant]
     Indication: Product used for unknown indication
  8. OMEPRAZOLE [Concomitant]
     Active Substance: OMEPRAZOLE
     Indication: Product used for unknown indication
  9. VITAMIN B12 TAB 500MCG [Concomitant]
     Indication: Product used for unknown indication

REACTIONS (1)
  - Off label use [Not Recovered/Not Resolved]

NARRATIVE: CASE EVENT DATE: 20201016
